FAERS Safety Report 19892799 (Version 22)
Quarter: 2025Q1

REPORT INFORMATION
  Report Type: Report from Study
  Country: US (occurrence: US)
  Receive Date: 20210928
  Receipt Date: 20250115
  Transmission Date: 20250409
  Serious: Yes (Hospitalization, Other)
  Sender: TAKEDA
  Company Number: US-TAKEDA-2021TUS058048

PATIENT
  Age: 66 Year
  Sex: Female
  Weight: 66 kg

DRUGS (6)
  1. TEDUGLUTIDE [Suspect]
     Active Substance: TEDUGLUTIDE
     Indication: Short-bowel syndrome
     Dosage: 2.5 MILLIGRAM, QD
     Dates: start: 202107
  2. TEDUGLUTIDE [Suspect]
     Active Substance: TEDUGLUTIDE
     Dosage: 2.5 MILLIGRAM, QD
     Dates: start: 20210721
  3. TEDUGLUTIDE [Suspect]
     Active Substance: TEDUGLUTIDE
     Dosage: 2.5 MILLIGRAM, QD
     Dates: start: 20210722
  4. TEDUGLUTIDE [Suspect]
     Active Substance: TEDUGLUTIDE
     Dosage: 2.5 MILLIGRAM, QD
     Dates: start: 20210723
  5. TEDUGLUTIDE [Suspect]
     Active Substance: TEDUGLUTIDE
     Dosage: 0.25 MILLILITER, QD
     Dates: start: 20211006
  6. TEDUGLUTIDE [Suspect]
     Active Substance: TEDUGLUTIDE
     Dosage: 0.25 MILLILITER, QD

REACTIONS (29)
  - Cerebrovascular accident [Unknown]
  - Transient ischaemic attack [Unknown]
  - Vascular device infection [Unknown]
  - Fistula [Unknown]
  - Device related sepsis [Unknown]
  - Peripheral swelling [Unknown]
  - Dehydration [Unknown]
  - Arthritis infective [Unknown]
  - Osteomyelitis [Unknown]
  - Swelling [Unknown]
  - Pyrexia [Unknown]
  - Pneumonia [Unknown]
  - Sepsis [Unknown]
  - Weight increased [Recovered/Resolved]
  - Weight decreased [Unknown]
  - Musculoskeletal discomfort [Unknown]
  - Balance disorder [Unknown]
  - Asthma [Unknown]
  - Migraine [Unknown]
  - Skin abrasion [Unknown]
  - Muscle spasms [Unknown]
  - Vitamin B12 decreased [Unknown]
  - Eructation [Unknown]
  - Product dose omission issue [Unknown]
  - Upper respiratory tract infection [Unknown]
  - Headache [Unknown]
  - Nausea [Unknown]
  - Abdominal pain upper [Unknown]
  - Abdominal pain [Unknown]

NARRATIVE: CASE EVENT DATE: 20210919
